FAERS Safety Report 6698710-9 (Version None)
Quarter: 2010Q2

REPORT INFORMATION
  Report Type: 
  Country: None (occurrence: None)
  Receive Date: 20100427
  Receipt Date: 20090527
  Transmission Date: 20101027
  Serious: No
  Sender: FDA-Public Use
  Company Number: US-ASTRAZENECA-2009UW13513

PATIENT
  Age: 45 Year
  Sex: Female
  Weight: 63.5 kg

DRUGS (2)
  1. ZOMIG-ZMT [Suspect]
     Indication: MIGRAINE
     Route: 048
  2. MULTI-VITAMINS [Concomitant]

REACTIONS (1)
  - PAIN OF SKIN [None]
